FAERS Safety Report 7417400-8 (Version None)
Quarter: 2011Q2

REPORT INFORMATION
  Report Type: 
  Country: None (occurrence: None)
  Receive Date: 20110408
  Receipt Date: 20110324
  Transmission Date: 20111010
  Serious: Yes (Hospitalization)
  Sender: FDA-Public Use
  Company Number: ACO_22639_2011

PATIENT
  Age: 38 Year
  Sex: Male
  Weight: 117.9 kg

DRUGS (22)
  1. MEGAMAN MVI (VITAMINS NOS) [Concomitant]
  2. ALBUTEROL [Concomitant]
  3. DOCUSATE SODIUM (DOCUSATE SODIUM) [Concomitant]
  4. THEOPHYLLINE [Concomitant]
  5. ERGOCALCIFEROL [Concomitant]
  6. DIAZEPAM [Concomitant]
  7. ACETAMINOPHEN AND HYDROCODONE BITARTRATE [Concomitant]
  8. OMEPRAZOLE [Concomitant]
  9. VITAMIN B12 /00052601/ (CYANOCOBALAMIN) [Concomitant]
  10. FISH OIL (FISH OIL) [Concomitant]
  11. BACLOFEN [Concomitant]
  12. COPAXONE [Concomitant]
  13. AMPYRA [Suspect]
     Indication: PRODUCT USED FOR UNKNOWN INDICATION
     Dosage: 10 MG, BID, ORAL
     Route: 048
     Dates: start: 20100701
  14. LEXAPRO [Concomitant]
  15. CYMBALTA [Concomitant]
  16. GABAPENTIN [Concomitant]
  17. LISINOPRIL [Concomitant]
  18. CLONAZEPAM [Concomitant]
  19. DULCOLAX /00064401/ (BISACODYL) [Concomitant]
  20. PREDNISONE [Concomitant]
  21. NABUMETONE [Concomitant]
  22. VITAMIN C /00008001/ (ASCORBIC ACID) [Concomitant]

REACTIONS (1)
  - URINARY TRACT INFECTION [None]
